FAERS Safety Report 4932903-3 (Version None)
Quarter: 2006Q1

REPORT INFORMATION
  Report Type: 
  Country: None (occurrence: None)
  Receive Date: 20060306
  Receipt Date: 20060222
  Transmission Date: 20060701
  Serious: Yes (Death)
  Sender: FDA-Public Use
  Company Number: JP-JNJFOC-20060202129

PATIENT
  Age: 51 Year
  Sex: Male

DRUGS (14)
  1. RISPERDAL [Suspect]
     Route: 048
  2. RISPERDAL [Suspect]
     Route: 048
  3. RISPERDAL [Suspect]
     Route: 048
  4. RISPERDAL [Suspect]
     Indication: SCHIZOPHRENIA
     Route: 048
  5. HALOPERIDOL [Suspect]
     Indication: DRUG USE FOR UNKNOWN INDICATION
     Route: 048
  6. SULTOPRIDE HYDROCHLORIDE [Suspect]
     Indication: SCHIZOPHRENIA
     Route: 048
  7. SULTOPRIDE HYDROCHLORIDE [Suspect]
     Route: 048
  8. SULTOPRIDE HYDROCHLORIDE [Suspect]
     Route: 048
  9. AMOBARBITAL SODIUM [Concomitant]
     Indication: SCHIZOPHRENIA
     Route: 048
  10. BROMVALERYLUREA [Concomitant]
     Indication: SCHIZOPHRENIA
     Route: 048
  11. CHLORPROMAZINE [Concomitant]
     Indication: SCHIZOPHRENIA
  12. ZOPICLONE [Concomitant]
     Indication: SCHIZOPHRENIA
  13. SENNOSIDE [Concomitant]
     Indication: CONSTIPATION
  14. MAGNESIUM OXIDE [Concomitant]
     Indication: CONSTIPATION

REACTIONS (8)
  - AGGRESSION [None]
  - CARDIO-RESPIRATORY ARREST [None]
  - ELECTROCARDIOGRAM QT CORRECTED INTERVAL PROLONGED [None]
  - EMPHYSEMA [None]
  - RESPIRATORY FAILURE [None]
  - RESTLESSNESS [None]
  - SNORING [None]
  - VENTRICULAR ARRHYTHMIA [None]
